FAERS Safety Report 18575973 (Version 8)
Quarter: 2021Q1

REPORT INFORMATION
  Report Type: Spontaneous
  Country: DE (occurrence: DE)
  Receive Date: 20201203
  Receipt Date: 20210303
  Transmission Date: 20210419
  Serious: Yes (Death, Life-Threatening, Other)
  Sender: FDA-Public Use
  Company Number: DE-GILEAD-2020-0506762

PATIENT
  Age: 44 Year
  Sex: Male

DRUGS (36)
  1. YESCARTA [Suspect]
     Active Substance: AXICABTAGENE CILOLEUCEL
     Indication: DIFFUSE LARGE B-CELL LYMPHOMA REFRACTORY
     Dosage: UNK
     Route: 042
     Dates: start: 20201007, end: 20201007
  2. LAXOBERAL [Concomitant]
     Active Substance: SODIUM PICOSULFATE
  3. FRESUBIN ENERGY [Concomitant]
  4. GLUCOSE [Concomitant]
     Active Substance: DEXTROSE
  5. MEROPENEM. [Concomitant]
     Active Substance: MEROPENEM
  6. ACIC [ACICLOVIR] [Concomitant]
     Active Substance: ACYCLOVIR
  7. METHYLPREDNISOLON [METHYLPREDNISOLONE] [Concomitant]
     Active Substance: METHYLPREDNISOLONE
  8. FOLSAN [Concomitant]
     Active Substance: FOLIC ACID
  9. PANTOPRAZOLE [Concomitant]
     Active Substance: PANTOPRAZOLE
  10. ALLOPURINOL. [Concomitant]
     Active Substance: ALLOPURINOL
  11. AMPHO?MORONAL [Concomitant]
     Active Substance: AMPHOTERICIN B
  12. CARBOPLATIN;ETOPOSIDE;IFOSFAMIDE [Concomitant]
     Active Substance: CARBOPLATIN\ETOPOSIDE\IFOSFAMIDE
     Indication: DIFFUSE LARGE B-CELL LYMPHOMA REFRACTORY
  13. COTRIM FORTE [Concomitant]
     Active Substance: SULFAMETHOXAZOLE\TRIMETHOPRIM
  14. DULCOLAX (BISACODYL) [Concomitant]
     Active Substance: BISACODYL
  15. LACTULOSE. [Concomitant]
     Active Substance: LACTULOSE
  16. JONOSTERIL BAS [Concomitant]
  17. ANIDULAFUNGIN [Concomitant]
     Active Substance: ANIDULAFUNGIN
  18. DORMICUM [MIDAZOLAM] [Concomitant]
     Active Substance: MIDAZOLAM HYDROCHLORIDE
  19. HUMAN ALBUMIN [Concomitant]
     Active Substance: ALBUMIN HUMAN
  20. HEPARIN [Concomitant]
     Active Substance: HEPARIN SODIUM
  21. TARGIN [Concomitant]
     Active Substance: NALOXONE HYDROCHLORIDE\OXYCODONE HYDROCHLORIDE
  22. OXYCODON [Concomitant]
     Active Substance: OXYCODONE
  23. MIDAZOLAM. [Concomitant]
     Active Substance: MIDAZOLAM
  24. ALBUREX [Concomitant]
     Active Substance: ALBUMIN HUMAN
  25. LYRICA [Concomitant]
     Active Substance: PREGABALIN
  26. PLATELETS [Concomitant]
     Active Substance: HUMAN PLATELET, ALLOGENIC
  27. PARACETAMOL [Concomitant]
     Active Substance: ACETAMINOPHEN
  28. NEOSTIGMIN [NEOSTIGMINE] [Concomitant]
  29. SODIUM BICARBONATE. [Concomitant]
     Active Substance: SODIUM BICARBONATE
  30. OLIMEL 5.7% [Concomitant]
  31. VANCOMYCIN [Concomitant]
     Active Substance: VANCOMYCIN
  32. HEXAL [MIDAZOLAM HYDROCHLORIDE] [Concomitant]
  33. POLATUZUMAB VEDOTIN. [Concomitant]
     Active Substance: POLATUZUMAB VEDOTIN
     Indication: DIFFUSE LARGE B-CELL LYMPHOMA REFRACTORY
  34. NACL [Concomitant]
     Active Substance: SODIUM CHLORIDE
  35. DYNASTAT [Concomitant]
     Active Substance: PARECOXIB SODIUM
  36. MAGNO SANOL UNO [Concomitant]

REACTIONS (10)
  - Bone marrow failure [Not Recovered/Not Resolved]
  - Sepsis [Fatal]
  - Cytokine release syndrome [Recovered/Resolved]
  - Aspergillus infection [Unknown]
  - Sopor [Not Recovered/Not Resolved]
  - Generalised tonic-clonic seizure [Not Recovered/Not Resolved]
  - Human herpesvirus 6 encephalitis [Not Recovered/Not Resolved]
  - Systemic candida [Unknown]
  - Muscle spasms [Unknown]
  - Immune effector cell-associated neurotoxicity syndrome [Recovered/Resolved]

NARRATIVE: CASE EVENT DATE: 202010
